FAERS Safety Report 24189462 (Version 1)
Quarter: 2024Q3

REPORT INFORMATION
  Report Type: Spontaneous
  Country: TR (occurrence: TR)
  Receive Date: 20240808
  Receipt Date: 20240808
  Transmission Date: 20241017
  Serious: Yes (Other)
  Sender: ASTELLAS
  Company Number: TR-ASTELLAS-2024US022418

PATIENT
  Age: 62 Year

DRUGS (1)
  1. PADCEV [Suspect]
     Active Substance: ENFORTUMAB VEDOTIN-EJFV
     Indication: Bladder transitional cell carcinoma metastatic
     Dosage: UNK UNK, CYCLIC (ON DAYS 1, 8 AND 15)
     Route: 065
     Dates: start: 20240517, end: 20240702

REACTIONS (1)
  - Thrombocytopenia [Unknown]
